FAERS Safety Report 24924145 (Version 2)
Quarter: 2025Q1

REPORT INFORMATION
  Report Type: Spontaneous
  Country: US (occurrence: US)
  Receive Date: 20250204
  Receipt Date: 20250317
  Transmission Date: 20250409
  Serious: No
  Sender: PFIZER
  Company Number: US-PFIZER INC-202400311601

PATIENT
  Age: 36 Year
  Sex: Female

DRUGS (3)
  1. TUKYSA [Suspect]
     Active Substance: TUCATINIB
     Indication: Human epidermal growth factor receptor positive
     Dosage: 150MG, TWO TABLETS TWICE A DAY
     Route: 048
  2. CAPECITABINE [Concomitant]
     Active Substance: CAPECITABINE
  3. OGIVRI [Concomitant]
     Active Substance: TRASTUZUMAB-DKST

REACTIONS (3)
  - Memory impairment [Unknown]
  - Illness [Unknown]
  - Off label use [Unknown]
